FAERS Safety Report 13455896 (Version 1)
Quarter: 2017Q2

REPORT INFORMATION
  Report Type: Spontaneous
  Country: US (occurrence: US)
  Receive Date: 20170419
  Receipt Date: 20170419
  Transmission Date: 20170830
  Serious: Yes (Death)
  Sender: FDA-Public Use
  Company Number: US-MALLINCKRODT-T201701491

PATIENT
  Age: 3 Decade
  Sex: Female

DRUGS (3)
  1. FENTANYL CITRATE. [Suspect]
     Active Substance: FENTANYL CITRATE
     Indication: PRODUCT USED FOR UNKNOWN INDICATION
     Dosage: UNK
     Route: 065
     Dates: start: 20160623, end: 20160623
  2. ALCOHOL. [Concomitant]
     Active Substance: ALCOHOL
     Route: 065
  3. COCAINE [Concomitant]
     Active Substance: COCAINE
     Route: 065

REACTIONS (2)
  - Overdose [Fatal]
  - Cardiac arrest [Fatal]

NARRATIVE: CASE EVENT DATE: 20160623
